FAERS Safety Report 25912029 (Version 1)
Quarter: 2025Q4

REPORT INFORMATION
  Report Type: Spontaneous
  Country: CN (occurrence: CN)
  Receive Date: 20251013
  Receipt Date: 20251013
  Transmission Date: 20260117
  Serious: Yes (Hospitalization)
  Sender: NOVARTIS
  Company Number: CN-002147023-NVSC2025CN152725

PATIENT
  Age: 84 Year
  Sex: Female
  Weight: 58 kg

DRUGS (2)
  1. CARBAMAZEPINE [Suspect]
     Active Substance: CARBAMAZEPINE
     Indication: Herpes zoster
     Dosage: 0.200 G, QD (DISPERSIBLE TABLETS)
     Route: 048
     Dates: start: 20250821, end: 20250822
  2. GABAPENTIN [Suspect]
     Active Substance: GABAPENTIN
     Indication: Herpes zoster
     Dosage: 0.300 G, TID
     Route: 048
     Dates: start: 20250821, end: 20250822

REACTIONS (6)
  - Dizziness [Recovering/Resolving]
  - Somnolence [Recovering/Resolving]
  - Neuralgia [Recovering/Resolving]
  - Mental disorder [Recovering/Resolving]
  - Nausea [Unknown]
  - Vomiting [Unknown]

NARRATIVE: CASE EVENT DATE: 20250822
